FAERS Safety Report 5249530-3 (Version None)
Quarter: 2007Q1

REPORT INFORMATION
  Report Type: 
  Country: None (occurrence: None)
  Receive Date: 20070228
  Receipt Date: 20060123
  Transmission Date: 20070707
  Serious: No
  Sender: FDA-Public Use
  Company Number: US-GLAXOSMITHKLINE-A0590484A

PATIENT
  Age: 50 Year
  Sex: Male

DRUGS (8)
  1. IMITREX [Suspect]
     Indication: HEADACHE
     Dosage: 1INJ AS REQUIRED
     Route: 058
     Dates: start: 19990101
  2. TYLENOL W/ CODEINE NO. 4 [Concomitant]
  3. ULTRAM [Concomitant]
  4. SOMA [Concomitant]
  5. BENTYL [Concomitant]
  6. ZANTAC [Concomitant]
  7. PREVACID [Concomitant]
  8. VOLTAREN [Concomitant]

REACTIONS (1)
  - INJECTION SITE BRUISING [None]
